FAERS Safety Report 5325623-7 (Version None)
Quarter: 2007Q2

REPORT INFORMATION
  Report Type: 
  Country: None (occurrence: None)
  Receive Date: 20070515
  Receipt Date: 20070507
  Transmission Date: 20071010
  Serious: Yes (Hospitalization)
  Sender: FDA-Public Use
  Company Number: US-ELI_LILLY_AND_COMPANY-US200704004471

PATIENT
  Age: 28 Year
  Sex: Female
  Weight: 77 kg

DRUGS (11)
  1. PERCOCET [Concomitant]
     Indication: PAIN
     Dates: start: 20070217, end: 20070201
  2. PREDNISONE TAB [Concomitant]
     Dosage: 30 MG, DAILY (1/D)
     Dates: start: 20070217
  3. PREGABALIN [Concomitant]
  4. PLAQUENIL [Concomitant]
     Dosage: 200 MG, DAILY (1/D)
  5. OTHER ANTIEMETICS [Concomitant]
     Dates: start: 20070101
  6. KEFLEX /00145501/ [Concomitant]
     Indication: URINARY TRACT INFECTION
     Dosage: UNK, UNK
     Dates: start: 20070201
  7. OXYCODONE HCL [Concomitant]
     Indication: PAIN
     Dosage: 5 MG, AS NEEDED
     Dates: start: 20070101
  8. OXYCODONE HCL [Concomitant]
     Dosage: 10 MG, AS NEEDED
  9. CYMBALTA [Suspect]
     Indication: FIBROMYALGIA
     Dosage: 20 MG, DAILY (1/D)
     Route: 048
     Dates: start: 20070112, end: 20070216
  10. VICODIN [Concomitant]
     Indication: PAIN
     Dosage: 1 UNK, EVERY 4 HRS
  11. TRAZODONE HCL [Concomitant]
     Dosage: 50 MG, AS NEEDED

REACTIONS (5)
  - EAR PAIN [None]
  - HEPATIC NECROSIS [None]
  - HEPATITIS [None]
  - PYREXIA [None]
  - URINARY TRACT INFECTION [None]
